FAERS Safety Report 13400726 (Version 1)
Quarter: 2017Q2

REPORT INFORMATION
  Report Type: Spontaneous
  Country: FR (occurrence: FR)
  Receive Date: 20170404
  Receipt Date: 20170404
  Transmission Date: 20170830
  Serious: Yes (Other)
  Sender: FDA-Public Use
  Company Number: PHHY2017FR049007

PATIENT
  Age: 22 Year
  Sex: Male

DRUGS (2)
  1. NEORAL [Suspect]
     Active Substance: CYCLOSPORINE
     Indication: TRANSPLANT
     Dosage: UNK UNK, (50 MG IN THE MORNING, 75 MG IN THE EVENING)
     Route: 048
     Dates: start: 20170103
  2. SOLUPRED [Suspect]
     Active Substance: PREDNISOLONE
     Indication: TRANSPLANT
     Dosage: 54 MG, QD
     Route: 065
     Dates: start: 20170103

REACTIONS (10)
  - Diarrhoea [Recovered/Resolved]
  - Liver injury [Recovered/Resolved]
  - Dry skin [Unknown]
  - Oedema [Unknown]
  - Weight decreased [Unknown]
  - Urinary tract infection [Unknown]
  - Renal impairment [Recovered/Resolved]
  - Mucosal inflammation [Unknown]
  - Thermal burn [Unknown]
  - Paraesthesia [Unknown]

NARRATIVE: CASE EVENT DATE: 20170224
